FAERS Safety Report 7992392-1 (Version None)
Quarter: 2011Q4

REPORT INFORMATION
  Report Type: 
  Country: None (occurrence: None)
  Receive Date: 20111219
  Receipt Date: 20110503
  Transmission Date: 20120403
  Serious: No
  Sender: FDA-Public Use
  Company Number: US-ASTRAZENECA-2011SE25585

PATIENT
  Age: 80 Year
  Sex: Female
  Weight: 59 kg

DRUGS (6)
  1. PLAVIX [Concomitant]
  2. CRESTOR [Suspect]
     Route: 048
     Dates: start: 20070101
  3. WARFARIN SODIUM [Concomitant]
  4. CRESTOR [Suspect]
     Indication: BLOOD CHOLESTEROL INCREASED
     Route: 048
  5. GENERIC LOPRESSOR [Concomitant]
  6. CRESTOR [Suspect]
     Route: 048

REACTIONS (5)
  - MUSCLE SPASMS [None]
  - MUSCULAR WEAKNESS [None]
  - URINARY TRACT DISORDER [None]
  - LIMB DISCOMFORT [None]
  - BURNING SENSATION [None]
